FAERS Safety Report 11916331 (Version 2)
Quarter: 2016Q1

REPORT INFORMATION
  Report Type: Spontaneous
  Country: FR (occurrence: FR)
  Receive Date: 20160114
  Receipt Date: 20160122
  Transmission Date: 20160526
  Serious: Yes (Hospitalization)
  Sender: FDA-Public Use
  Company Number: FR-PFIZER INC-2016006149

PATIENT
  Age: 49 Year
  Sex: Male

DRUGS (14)
  1. SKENAN [Concomitant]
     Active Substance: MORPHINE SULFATE
     Indication: PAIN
     Dosage: 1 DF, 2X/DAY (MORNING, EVENING)
     Route: 048
     Dates: end: 20150613
  2. VERSATIS [Concomitant]
     Active Substance: LIDOCAINE
     Indication: PAIN
     Dosage: 2 TO 3 APPLICATIONS DAILY
     Route: 003
     Dates: end: 20150618
  3. NORSET [Concomitant]
     Active Substance: MIRTAZAPINE
     Indication: MENTAL DISORDER
     Dosage: 15 MG, DAILY
     Route: 048
     Dates: end: 20150613
  4. TIAPRIDAL [Concomitant]
     Active Substance: TIAPRIDE HYDROCHLORIDE
     Dosage: 400 MG, DAILY
     Route: 048
     Dates: start: 20150523, end: 20150613
  5. ACTIQ [Concomitant]
     Active Substance: FENTANYL CITRATE
     Indication: PAIN
     Dosage: 800 UG, EVERY 4 HRS
     Route: 048
     Dates: end: 20150613
  6. SERESTA [Concomitant]
     Active Substance: OXAZEPAM
     Indication: MENTAL DISORDER
     Dosage: 300 MG, DAILY
     Route: 048
     Dates: end: 20150613
  7. SPIRIVA [Concomitant]
     Active Substance: TIOTROPIUM BROMIDE MONOHYDRATE
     Indication: CARDIOPULMONARY FAILURE
     Dosage: 1 DF, 1X/DAY MORNING
     Route: 055
     Dates: end: 20150613
  8. TIAPRIDAL [Concomitant]
     Active Substance: TIAPRIDE HYDROCHLORIDE
     Indication: MENTAL DISORDER
     Dosage: 300 MG, DAILY
     Route: 048
     Dates: end: 20150522
  9. ONBREZ BREEZHALER [Concomitant]
     Active Substance: INDACATEROL
     Indication: RESPIRATORY FAILURE
     Dosage: 300 UG, DAILY
     Route: 055
     Dates: end: 20150613
  10. THERALENE [Concomitant]
     Active Substance: TRIMEPRAZINE
     Indication: MENTAL DISORDER
     Dosage: 40 GTT, AT BEDTIME
     Route: 048
     Dates: end: 20150613
  11. LASILIX SPECIAL [Concomitant]
     Active Substance: FUROSEMIDE
     Indication: HYPERTENSION
     Dosage: 125 MG, DAILY
     Route: 048
     Dates: start: 20150522, end: 20150613
  12. NEURONTIN [Suspect]
     Active Substance: GABAPENTIN
     Indication: PAIN
     Dosage: 200 MG, 3X/DAY
     Route: 048
     Dates: start: 20150522
  13. NEURONTIN [Suspect]
     Active Substance: GABAPENTIN
     Dosage: 600 MG, 3X/DAY
     Route: 048
     Dates: end: 20150613
  14. EFFEXOR LP [Concomitant]
     Active Substance: VENLAFAXINE HYDROCHLORIDE
     Indication: MENTAL DISORDER
     Dosage: 2 DF, DAILY
     Route: 048
     Dates: end: 20150613

REACTIONS (7)
  - Lipase increased [Recovered/Resolved]
  - Vomiting [Unknown]
  - Hyperhidrosis [Recovered/Resolved]
  - Nausea [Unknown]
  - Asthenia [Recovered/Resolved]
  - Drug withdrawal syndrome [Recovered/Resolved]
  - Headache [Unknown]

NARRATIVE: CASE EVENT DATE: 20150614
